FAERS Safety Report 6179914-0 (Version None)
Quarter: 2009Q2

REPORT INFORMATION
  Report Type: 
  Country: None (occurrence: None)
  Receive Date: 20090505
  Receipt Date: 20090427
  Transmission Date: 20091009
  Serious: Yes (Other)
  Sender: FDA-Public Use
  Company Number: PHHY2009IT15976

PATIENT
  Age: 62 Year
  Sex: Male

DRUGS (5)
  1. STALEVO 100 [Suspect]
     Indication: PARKINSON'S DISEASE
     Dosage: (700/100/1400) MG/DAY
  2. STALEVO 100 [Suspect]
     Dosage: (500/100/1000) MG/DAY
  3. LEVODOPA BENSERAZIDE HYDROCHLO [Concomitant]
     Indication: PARKINSON'S DISEASE
     Dosage: UNK
  4. LEVODOPA BENSERAZIDE HYDROCHLO [Concomitant]
     Dosage: (200 MG/50 MG)
  5. PERGOLIDE [Concomitant]
     Indication: PARKINSON'S DISEASE
     Dosage: 3 MG

REACTIONS (1)
  - PLEUROTHOTONUS [None]
